FAERS Safety Report 13982700 (Version 1)
Quarter: 2017Q3

REPORT INFORMATION
  Report Type: Report from Study
  Country: US (occurrence: US)
  Receive Date: 20170918
  Receipt Date: 20170918
  Transmission Date: 20171128
  Serious: Yes (Hospitalization)
  Sender: FDA-Public Use
  Company Number: US-JNJFOC-20170901447

PATIENT
  Age: 63 Year
  Sex: Male

DRUGS (24)
  1. SYNTHROID [Concomitant]
     Active Substance: LEVOTHYROXINE SODIUM
  2. MIRALAX [Concomitant]
     Active Substance: POLYETHYLENE GLYCOL 3350
  3. DESYREL [Concomitant]
     Active Substance: TRAZODONE HYDROCHLORIDE
  4. COMPAZINE [Concomitant]
     Active Substance: PROCHLORPERAZINE MALEATE
  5. DIAZEPAM. [Concomitant]
     Active Substance: DIAZEPAM
  6. ASPIRIN. [Concomitant]
     Active Substance: ASPIRIN
  7. METFORMIN [Concomitant]
     Active Substance: METFORMIN HYDROCHLORIDE
  8. BENZONATATE. [Concomitant]
     Active Substance: BENZONATATE
  9. CHERATUSSIN [Concomitant]
     Active Substance: AMMONIUM CHLORIDE\DEXTROMETHORPHAN\SODIUM CITRATE
  10. LISINOPRIL. [Concomitant]
     Active Substance: LISINOPRIL
  11. OXYCODONE [Concomitant]
     Active Substance: OXYCODONE
  12. NEURONTIN [Concomitant]
     Active Substance: GABAPENTIN
  13. NITROSTAT [Concomitant]
     Active Substance: NITROGLYCERIN
  14. PROTONIX [Concomitant]
     Active Substance: PANTOPRAZOLE SODIUM
  15. VITAMIN D [Concomitant]
     Active Substance: CHOLECALCIFEROL
  16. AMLODIPINE [Concomitant]
     Active Substance: AMLODIPINE BESYLATE
  17. ZOLOFT [Concomitant]
     Active Substance: SERTRALINE HYDROCHLORIDE
  18. IMBRUVICA [Suspect]
     Active Substance: IBRUTINIB
     Indication: B-CELL LYMPHOMA
     Route: 048
     Dates: start: 20170307
  19. COREG [Concomitant]
     Active Substance: CARVEDILOL
  20. FENTANYL. [Concomitant]
     Active Substance: FENTANYL
  21. NOVOLOG [Concomitant]
     Active Substance: INSULIN ASPART
  22. LANTUS [Concomitant]
     Active Substance: INSULIN GLARGINE
  23. BIFIDOBACTERIUM LACTIS [Concomitant]
     Active Substance: BIFIDOBACTERIUM ANIMALIS LACTIS
  24. FLAGYL [Concomitant]
     Active Substance: METRONIDAZOLE\METRONIDAZOLE HYDROCHLORIDE

REACTIONS (3)
  - Oesophagitis [Unknown]
  - Rib fracture [Unknown]
  - Fall [Unknown]

NARRATIVE: CASE EVENT DATE: 201708
